FAERS Safety Report 5654854-1 (Version None)
Quarter: 2008Q1

REPORT INFORMATION
  Report Type: 
  Country: None (occurrence: None)
  Receive Date: 20080307
  Receipt Date: 20070813
  Transmission Date: 20080703
  Serious: No
  Sender: FDA-Public Use
  Company Number: A0669776A

PATIENT
  Age: 67 Year
  Sex: Female

DRUGS (5)
  1. REQUIP [Suspect]
     Indication: SLEEP DISORDER
     Dosage: .25MG AT NIGHT
     Route: 048
     Dates: start: 20070811
  2. KLONOPIN [Concomitant]
  3. AMBIEN [Concomitant]
  4. ELMIRON [Concomitant]
  5. THYROID HORMONE [Concomitant]

REACTIONS (7)
  - ARRHYTHMIA [None]
  - HANGOVER [None]
  - HEART RATE INCREASED [None]
  - HYPERHIDROSIS [None]
  - INSOMNIA [None]
  - NAUSEA [None]
  - TINNITUS [None]
